FAERS Safety Report 10285783 (Version 1)
Quarter: 2014Q3

REPORT INFORMATION
  Report Type: Spontaneous
  Country: US (occurrence: US)
  Receive Date: 20140709
  Receipt Date: 20140709
  Transmission Date: 20150326
  Serious: Yes (Hospitalization)
  Sender: FDA-Public Use
  Company Number: 2014SP003839

PATIENT
  Age: 72 Year
  Sex: Female

DRUGS (16)
  1. METOPROLOL SUCCINATE. [Concomitant]
     Active Substance: METOPROLOL SUCCINATE
  2. NABUMETONE. [Concomitant]
     Active Substance: NABUMETONE
  3. CALTRATE /00944201/ [Concomitant]
  4. METHOTREXATE [Suspect]
     Active Substance: METHOTREXATE
     Indication: RHEUMATOID ARTHRITIS
  5. ETANERCEPT [Suspect]
     Active Substance: ETANERCEPT
     Indication: RHEUMATOID ARTHRITIS
     Route: 058
     Dates: start: 199902, end: 20140511
  6. CALCIUM MEFOLINATE W/PYRIDOXINE HYDROCHLORIDE [Concomitant]
  7. CITALOPRAM HYDROBROMIDE. [Concomitant]
     Active Substance: CITALOPRAM HYDROBROMIDE
  8. VITAMIN C [Concomitant]
     Active Substance: ASCORBIC ACID
  9. FOLIC ACID. [Concomitant]
     Active Substance: FOLIC ACID
  10. OMEGA-3 TRIGLYCERIDES [Concomitant]
  11. ERGOCALCIFEROL. [Concomitant]
     Active Substance: ERGOCALCIFEROL
  12. PYRIDOXINE HYDROCHLORIDE. [Concomitant]
     Active Substance: PYRIDOXINE HYDROCHLORIDE
  13. LIDOCAINE. [Concomitant]
     Active Substance: LIDOCAINE
  14. ACETYLSALICYLIC ACID [Concomitant]
     Active Substance: ASPIRIN
  15. GABAPENTIN. [Concomitant]
     Active Substance: GABAPENTIN
  16. CLINDAMYCIN [Concomitant]
     Active Substance: CLINDAMYCIN\CLINDAMYCIN PHOSPHATE

REACTIONS (22)
  - Rheumatoid arthritis [Unknown]
  - Carpal tunnel syndrome [Unknown]
  - Back pain [Unknown]
  - Bronchitis [Unknown]
  - Arthralgia [Unknown]
  - Tenderness [Unknown]
  - Osteopenia [Unknown]
  - Vomiting [Unknown]
  - Vitiligo [Unknown]
  - Peripheral swelling [Unknown]
  - Spinal column stenosis [Unknown]
  - Joint effusion [Unknown]
  - Stomatitis [Unknown]
  - Joint crepitation [Unknown]
  - Diarrhoea [Unknown]
  - Musculoskeletal pain [Unknown]
  - Intervertebral disc protrusion [Unknown]
  - Vitamin D deficiency [Unknown]
  - Joint destruction [Unknown]
  - Immunodeficiency [Unknown]
  - Cellulitis [Recovered/Resolved]
  - Osteoporosis [Unknown]

NARRATIVE: CASE EVENT DATE: 2014
